FAERS Safety Report 25074646 (Version 1)
Quarter: 2025Q1

REPORT INFORMATION
  Report Type: Spontaneous
  Country: GB (occurrence: GB)
  Receive Date: 20250313
  Receipt Date: 20250313
  Transmission Date: 20250409
  Serious: Yes (Life-Threatening, Hospitalization)
  Sender: FERRING
  Company Number: GB-FERRINGPH-2025FE00922

PATIENT

DRUGS (2)
  1. DESMOPRESSIN [Suspect]
     Active Substance: DESMOPRESSIN
     Indication: Diabetes insipidus
     Dosage: 0.1 MG, ONCE A DAY
     Route: 065
     Dates: start: 20250220, end: 20250224
  2. DESMOPRESSIN [Concomitant]
     Active Substance: DESMOPRESSIN
     Indication: Diabetes insipidus
     Dates: start: 2003, end: 20250220

REACTIONS (7)
  - Dehydration [Unknown]
  - Abdominal pain upper [Recovered/Resolved]
  - Chills [Recovered/Resolved]
  - Feeling cold [Unknown]
  - Malaise [Recovered/Resolved]
  - Headache [Recovered/Resolved]
  - Drug ineffective [Recovered/Resolved]

NARRATIVE: CASE EVENT DATE: 20250222
